FAERS Safety Report 24458348 (Version 1)
Quarter: 2024Q4

REPORT INFORMATION
  Report Type: Report from Study
  Country: CA (occurrence: CA)
  Receive Date: 20241018
  Receipt Date: 20241018
  Transmission Date: 20250115
  Serious: No
  Sender: ROCHE
  Company Number: CA-ROCHE-3523499

PATIENT
  Sex: Female
  Weight: 147.4 kg

DRUGS (16)
  1. RITUXAN [Suspect]
     Active Substance: RITUXIMAB
     Indication: Rheumatoid arthritis
     Route: 042
     Dates: start: 20181128
  2. FOLIC ACID [Concomitant]
     Active Substance: FOLIC ACID
  3. CALCIUM [Concomitant]
     Active Substance: CALCIUM
  4. FUROSEMIDE [Concomitant]
     Active Substance: FUROSEMIDE
  5. LEVOTHYROXINE [Concomitant]
     Active Substance: LEVOTHYROXINE
  6. METHOTREXATE [Concomitant]
     Active Substance: METHOTREXATE
  7. MIRENA [Concomitant]
     Active Substance: LEVONORGESTREL
  8. VITAMINS [Concomitant]
     Active Substance: VITAMINS
  9. OZEMPIC [Concomitant]
     Active Substance: SEMAGLUTIDE
  10. PREDNISONE [Concomitant]
     Active Substance: PREDNISONE
  11. RABEPRAZOLE [Concomitant]
     Active Substance: RABEPRAZOLE
  12. TELMISARTAN [Concomitant]
     Active Substance: TELMISARTAN
  13. VENTOLIN [Concomitant]
     Active Substance: ALBUTEROL SULFATE
  14. VITAMIN D [Concomitant]
     Active Substance: VITAMIN D NOS
  15. XENICAL [Concomitant]
     Active Substance: ORLISTAT
  16. ZENHALE [Concomitant]
     Active Substance: FORMOTEROL FUMARATE\MOMETASONE FUROATE

REACTIONS (1)
  - Illness [Unknown]
